FAERS Safety Report 4928524-9 (Version None)
Quarter: 2006Q1

REPORT INFORMATION
  Report Type: 
  Country: None (occurrence: None)
  Receive Date: 20060223
  Receipt Date: 20060209
  Transmission Date: 20060701
  Serious: Yes (Hospitalization)
  Sender: FDA-Public Use
  Company Number: 2005US001101

PATIENT
  Age: 50 Year
  Sex: Male

DRUGS (14)
  1. PROGRAF [Suspect]
     Indication: PROPHYLAXIS AGAINST TRANSPLANT REJECTION
     Dosage: 4 MG, BID, ORAL
     Route: 048
     Dates: start: 20050131
  2. MYCOPHENOLATE MOFETIL (MYCOPHENOLATE MOFETIL) [Suspect]
     Indication: PROPHYLAXIS AGAINST TRANSPLANT REJECTION
     Dosage: 1000.00 MG, BID, ORAL
     Route: 048
     Dates: start: 20050124
  3. PREDNISONE TAB [Suspect]
     Indication: PROPHYLAXIS AGAINST TRANSPLANT REJECTION
     Dosage: 30 MG, UID/QD, ORAL
     Route: 048
     Dates: start: 20050130
  4. NEUTRA-PHOS (SODIUM PHOSPHATE DIBASIC, POTASSIUM PHOSPHATE DIBASIC, SO [Concomitant]
  5. TOPROL-XL [Concomitant]
  6. CLONIDINE [Concomitant]
  7. PROTONIX [Concomitant]
  8. ASPIRIN [Concomitant]
  9. ELAVIL [Concomitant]
  10. LANTUS [Concomitant]
  11. ACYCLOVIR [Concomitant]
  12. FLOMAX [Concomitant]
  13. MVI (VITAMINS NOS) [Concomitant]
  14. LIPITOR [Concomitant]

REACTIONS (4)
  - NECROSIS ISCHAEMIC [None]
  - OSTEOMYELITIS [None]
  - SYNCOPE [None]
  - TOE AMPUTATION [None]
